FAERS Safety Report 7998946 (Version 4)
Quarter: 2013Q2

REPORT INFORMATION
  Report Type: Spontaneous
  Country: US (occurrence: US)
  Receive Date: 20110621
  Receipt Date: 20130531
  Transmission Date: 20140414
  Serious: Yes (Hospitalization, Other)
  Sender: FDA-Public Use
  Company Number: US-ROCHE-782921

PATIENT
  Age: 15 Year
  Sex: Male
  Weight: 52.21 kg

DRUGS (1)
  1. ACCUTANE [Suspect]
     Indication: ACNE
     Route: 065
     Dates: start: 200409, end: 200504

REACTIONS (14)
  - Inflammatory bowel disease [Unknown]
  - Depression [Unknown]
  - Irritable bowel syndrome [Recovered/Resolved]
  - Diverticulitis [Unknown]
  - Anxiety [Unknown]
  - Renal failure [Unknown]
  - Crohn^s disease [Unknown]
  - Colitis ulcerative [Unknown]
  - Mental disorder [Unknown]
  - Suicidal ideation [Unknown]
  - Suicide attempt [Unknown]
  - Dry skin [Unknown]
  - Lip dry [Unknown]
  - Epistaxis [Unknown]
